FAERS Safety Report 9314240 (Version 1)
Quarter: 2013Q2

REPORT INFORMATION
  Report Type: Report from Study
  Country: US (occurrence: US)
  Receive Date: 20130529
  Receipt Date: 20130529
  Transmission Date: 20140414
  Serious: Yes (Hospitalization)
  Sender: FDA-Public Use
  Company Number: PHHO2013US006786

PATIENT
  Age: 67 Year
  Sex: Female
  Weight: 65.5 kg

DRUGS (4)
  1. TASIGNA [Suspect]
     Indication: CHORDOMA
     Dosage: 200 MG, BID
     Route: 048
     Dates: start: 20120625, end: 20121116
  2. LEXAPRO [Concomitant]
  3. COLACE [Concomitant]
  4. LIPITOR [Concomitant]

REACTIONS (1)
  - Postoperative wound infection [Recovered/Resolved]
